FAERS Safety Report 6551368-1 (Version None)
Quarter: 2010Q1

REPORT INFORMATION
  Report Type: 
  Country: None (occurrence: None)
  Receive Date: 20100120
  Receipt Date: 20100108
  Transmission Date: 20100710
  Serious: Yes (Hospitalization)
  Sender: FDA-Public Use
  Company Number: ALA_00403_2010

PATIENT
  Age: 25 Year
  Sex: Female

DRUGS (1)
  1. MESALAMINE [Suspect]
     Indication: COLITIS ULCERATIVE
     Dosage: 300 MG TID

REACTIONS (7)
  - COUGH [None]
  - LUNG INFILTRATION [None]
  - LUNG NEOPLASM [None]
  - MEDIASTINAL DISORDER [None]
  - NODULE [None]
  - PULMONARY VASCULITIS [None]
  - PYREXIA [None]
